FAERS Safety Report 5052961-8 (Version None)
Quarter: 2006Q3

REPORT INFORMATION
  Report Type: 
  Country: None (occurrence: None)
  Receive Date: 20060711
  Receipt Date: 20060616
  Transmission Date: 20061208
  Serious: Yes (Life-Threatening)
  Sender: FDA-Public Use
  Company Number: JP200606001514

PATIENT
  Age: 68 Year
  Sex: Female
  Weight: 56 kg

DRUGS (9)
  1. EVISTA [Suspect]
     Indication: OSTEOPOROSIS POSTMENOPAUSAL
     Dosage: 60 MG, DAILY (1/D), ORAL
     Route: 048
     Dates: start: 20050101, end: 20060509
  2. ALFACALCIDOL (ALFACALCIDOL) TABLET [Concomitant]
  3. LOXONIN (LOXOPROFEN SODIUM) [Concomitant]
  4. EPENARD (EPERISONE HYDROCHLORIDE) [Concomitant]
  5. MUCOSTA (REBAMIPIDE) [Concomitant]
  6. HALCION /NET/(TRIAZOLAM) TABLET [Concomitant]
  7. DIOVAN ^NOVARTIS^ (VALSARTAN) TABLET, 80 MG [Concomitant]
  8. JUVELA /JPN/ (TOCOPHERYL NICOTINATE) [Concomitant]
  9. MECOBALAMIN (MECOBALAMIN) [Concomitant]

REACTIONS (8)
  - DIZZINESS [None]
  - ELECTROCARDIOGRAM ST-T CHANGE [None]
  - MALAISE [None]
  - PULMONARY EMBOLISM [None]
  - SENSATION OF HEAVINESS [None]
  - TACHYCARDIA [None]
  - VARICOSE VEIN [None]
  - VENOUS THROMBOSIS [None]
